FAERS Safety Report 4751548-1 (Version None)
Quarter: 2005Q3

REPORT INFORMATION
  Report Type: 
  Country: None (occurrence: None)
  Receive Date: 20050822
  Receipt Date: 20050811
  Transmission Date: 20060218
  Serious: Yes (Other)
  Sender: FDA-Public Use
  Company Number: 2005108001

PATIENT
  Age: 65 Year
  Sex: Male

DRUGS (3)
  1. PREDNISONE [Suspect]
     Indication: POLYMYALGIA
     Dosage: (1 MG,), ORAL
     Route: 048
     Dates: start: 19990101
  2. SERETIDE (FLUTICASONE PROPIONATE, SALMETEROL XINAFOATE) [Concomitant]
  3. ALBUTEROL SULFATE HFA [Concomitant]

REACTIONS (2)
  - CONDUCTIVE DEAFNESS [None]
  - SPEECH DISORDER [None]
